FAERS Safety Report 16308857 (Version 1)
Quarter: 2019Q2

REPORT INFORMATION
  Report Type: Spontaneous
  Country: US (occurrence: US)
  Receive Date: 20190514
  Receipt Date: 20190514
  Transmission Date: 20190711
  Serious: Yes (Hospitalization, Other)
  Sender: FDA-Public Use
  Company Number: US-AUROBINDO-AUR-APL-2019-025634

PATIENT

DRUGS (7)
  1. TACROLIMUS. [Suspect]
     Active Substance: TACROLIMUS
     Dosage: 1 MILLIGRAM, TWO TIMES A DAY
     Route: 048
  2. PREDNISONE. [Suspect]
     Active Substance: PREDNISONE
     Indication: RENAL TRANSPLANT
     Dosage: 5 MILLIGRAM, DAILY
     Route: 048
  3. NIFEDIPINE. [Concomitant]
     Active Substance: NIFEDIPINE
     Indication: PRODUCT USED FOR UNKNOWN INDICATION
     Dosage: 60 MILLIGRAM, DAILY
     Route: 065
  4. MYCOPHENOLATE MOFETIL. [Suspect]
     Active Substance: MYCOPHENOLATE MOFETIL
     Indication: RENAL TRANSPLANT
     Dosage: 1 GRAM, TWO TIMES A DAY
     Route: 048
  5. MYCOPHENOLATE MOFETIL. [Suspect]
     Active Substance: MYCOPHENOLATE MOFETIL
     Dosage: 500 MILLIGRAM, TWO TIMES A DAY
     Route: 048
  6. MYCOPHENOLATE MOFETIL. [Suspect]
     Active Substance: MYCOPHENOLATE MOFETIL
     Dosage: 250 MILLIGRAM, TWO TIMES A DAY
     Route: 048
  7. TACROLIMUS. [Suspect]
     Active Substance: TACROLIMUS
     Indication: RENAL TRANSPLANT
     Dosage: 2 MILLIGRAM, TWO TIMES A DAY
     Route: 048

REACTIONS (11)
  - Dysuria [Recovered/Resolved]
  - Pyelonephritis acute [Recovered/Resolved]
  - Myalgia [Recovered/Resolved]
  - Suprapubic pain [Recovered/Resolved]
  - BK virus infection [Recovered/Resolved]
  - Chills [Recovered/Resolved]
  - Adenovirus infection [Recovered/Resolved]
  - Haematuria [Recovered/Resolved]
  - Cystitis haemorrhagic [Recovered/Resolved]
  - Micturition urgency [Recovered/Resolved]
  - Pyrexia [Recovered/Resolved]
